FAERS Safety Report 25472637 (Version 1)
Quarter: 2025Q2

REPORT INFORMATION
  Report Type: Spontaneous
  Country: CA (occurrence: CA)
  Receive Date: 20250624
  Receipt Date: 20250624
  Transmission Date: 20250717
  Serious: Yes (Life-Threatening, Hospitalization, Other)
  Sender: TEVA
  Company Number: CA-TEVA-VS-3342785

PATIENT
  Age: 11 Month
  Sex: Female

DRUGS (2)
  1. CARBOPLATIN [Suspect]
     Active Substance: CARBOPLATIN
     Indication: Neuroblastoma
     Route: 042
  2. ETOPOSIDE [Suspect]
     Active Substance: ETOPOSIDE
     Indication: Neuroblastoma
     Dosage: DOSE FORM: LIQUID INTRAVENOUS
     Route: 042

REACTIONS (3)
  - Pyrexia [Recovered/Resolved]
  - Cough [Recovered/Resolved]
  - Neutropenia [Recovered/Resolved]
